FAERS Safety Report 10162107 (Version 1)
Quarter: 2014Q2

REPORT INFORMATION
  Report Type: Spontaneous
  Country: US (occurrence: None)
  Receive Date: 20140507
  Receipt Date: 20140507
  Transmission Date: 20141212
  Serious: Yes (Hospitalization)
  Sender: FDA-Public Use
  Company Number: CO-KP-US-2014-020

PATIENT
  Age: 23 Year
  Sex: Male
  Weight: 81.6 kg

DRUGS (10)
  1. CLONIDINE [Suspect]
     Indication: NEURALGIA
     Route: 061
  2. GABAPENTIN [Suspect]
     Route: 061
  3. IMIPRAMINE [Suspect]
     Route: 061
  4. KETAMINE [Suspect]
     Route: 061
  5. LIDOCAINE [Suspect]
     Route: 061
  6. MEFENAMIC ACID [Suspect]
     Route: 061
  7. OXYCODONE/ACETAMINOPHEN [Suspect]
  8. ZOLPIDEM (UNKNOWN) [Suspect]
  9. ARIPIPRAZOLE [Concomitant]
  10. CLONAZEPAM [Concomitant]

REACTIONS (9)
  - Mental status changes [None]
  - Bradycardia [None]
  - Hypertension [None]
  - Mydriasis [None]
  - Subarachnoid haemorrhage [None]
  - Overdose [None]
  - Toxicity to various agents [None]
  - Vasculitis [None]
  - Drug administration error [None]
